FAERS Safety Report 12235455 (Version 1)
Quarter: 2016Q2

REPORT INFORMATION
  Report Type: Spontaneous
  Country: TW (occurrence: TW)
  Receive Date: 20160404
  Receipt Date: 20160404
  Transmission Date: 20160815
  Serious: Yes (Other)
  Sender: FDA-Public Use
  Company Number: TW-APOPHARMA USA, INC.-2016AP007517

PATIENT

DRUGS (2)
  1. ALKERAN [Suspect]
     Active Substance: MELPHALAN
     Indication: RETINOBLASTOMA
     Dosage: 5 MG, OTHER
     Route: 013
  2. ALKERAN [Suspect]
     Active Substance: MELPHALAN
     Indication: VITREOUS DISORDER
     Dosage: 8 ?G, SINGLE
     Route: 031

REACTIONS (1)
  - Chorioretinal atrophy [Not Recovered/Not Resolved]
